FAERS Safety Report 16780237 (Version 2)
Quarter: 2019Q4

REPORT INFORMATION
  Report Type: Report from Study
  Country: US (occurrence: US)
  Receive Date: 20190906
  Receipt Date: 20191009
  Transmission Date: 20200122
  Serious: No
  Sender: FDA-Public Use
  Company Number: US-EMD SERONO-9103295

PATIENT
  Age: 55 Year
  Sex: Male

DRUGS (2)
  1. MAVENCLAD [Suspect]
     Active Substance: CLADRIBINE
     Dosage: AS OF 05 AUG 2019, THE PATIENT TOOK 7 TABLETS FOR HIS SECOND WEEK THERAPY
     Route: 048
  2. MAVENCLAD [Suspect]
     Active Substance: CLADRIBINE
     Indication: MULTIPLE SCLEROSIS
     Dosage: FIRST WEEK THERAPY WITH 8 TABLETS IN TOTAL
     Route: 048
     Dates: start: 20190703

REACTIONS (5)
  - Nausea [Recovered/Resolved]
  - Muscle spasticity [Recovered/Resolved]
  - Dysgeusia [Unknown]
  - Headache [Not Recovered/Not Resolved]
  - Paraesthesia [Unknown]

NARRATIVE: CASE EVENT DATE: 201907
